FAERS Safety Report 4735792-5 (Version None)
Quarter: 2005Q3

REPORT INFORMATION
  Report Type: 
  Country: None (occurrence: None)
  Receive Date: 20050802
  Receipt Date: 20050722
  Transmission Date: 20060218
  Serious: Yes (Hospitalization, Other)
  Sender: FDA-Public Use
  Company Number: USA-20030012149

PATIENT
  Age: 51 Year
  Sex: Male

DRUGS (9)
  1. OXYCONTIN [Suspect]
     Indication: PAIN
     Dosage: SEE IMAGE
     Route: 048
  2. OXYCODONE HCL [Concomitant]
  3. DURAGESIC-100 [Concomitant]
  4. PERCOCET [Concomitant]
  5. NEXIUM [Concomitant]
  6. VICODIN [Concomitant]
  7. PROTONIX [Concomitant]
  8. ATIVAN [Concomitant]
  9. TOPROL-XL [Concomitant]

REACTIONS (17)
  - ANXIETY [None]
  - ARTHRALGIA [None]
  - BURSITIS [None]
  - CALCULUS URETERIC [None]
  - CHEST PAIN [None]
  - CHOLELITHIASIS [None]
  - CONSTIPATION [None]
  - DEPRESSION [None]
  - DRUG DEPENDENCE [None]
  - DRUG WITHDRAWAL SYNDROME [None]
  - HYDRONEPHROSIS [None]
  - HYPOKINESIA [None]
  - INADEQUATE ANALGESIA [None]
  - MENTAL DISORDER [None]
  - POST INFLAMMATORY PIGMENTATION CHANGE [None]
  - SLEEP DISORDER [None]
  - TENDERNESS [None]
